FAERS Safety Report 25035977 (Version 1)
Quarter: 2025Q1

REPORT INFORMATION
  Report Type: Spontaneous
  Country: US (occurrence: US)
  Receive Date: 20250304
  Receipt Date: 20250304
  Transmission Date: 20250409
  Serious: No
  Sender: RECORDATI
  Company Number: US-RECORDATI RARE DISEASE INC.-2023009078

PATIENT

DRUGS (15)
  1. ISTURISA [Suspect]
     Active Substance: OSILODROSTAT PHOSPHATE
     Indication: Pituitary-dependent Cushing^s syndrome
     Dates: start: 20210804
  2. ISTURISA [Suspect]
     Active Substance: OSILODROSTAT PHOSPHATE
     Dosage: 2 MG, BID
     Route: 048
  3. ARGININE [Concomitant]
     Active Substance: ARGININE
     Indication: Product used for unknown indication
     Dosage: 1500 MG, QD, TABLET 500 MG
     Route: 048
     Dates: start: 20240126
  4. Berberine complex [Concomitant]
     Indication: Product used for unknown indication
     Dosage: 200-200-50, QD, CAPSULE 200
     Route: 048
     Dates: start: 20221221
  5. CELERY SEED [Concomitant]
     Active Substance: CELERY SEED
     Indication: Product used for unknown indication
     Dosage: 1 DOSAGE FORM, QD
     Route: 048
     Dates: start: 20200721
  6. Dandelion root [Concomitant]
     Indication: Product used for unknown indication
     Dosage: 525 MG, BID, CAPSULE 525 MG
     Route: 048
     Dates: start: 20230126
  7. Enzyme digest [Concomitant]
     Indication: Product used for unknown indication
     Route: 048
     Dates: start: 20210401
  8. GARLIC [Concomitant]
     Active Substance: GARLIC
     Indication: Product used for unknown indication
     Dosage: 10 MG, QD
     Route: 048
     Dates: start: 20200721
  9. LISINOPRIL [Concomitant]
     Active Substance: LISINOPRIL
     Indication: Product used for unknown indication
     Dosage: 10 MG, QD, TABLET 10 MG
     Route: 048
     Dates: start: 20210221
  10. Liver support [Concomitant]
     Indication: Product used for unknown indication
     Dosage: 1 DOSAGE FORM, BID, TABLET
     Route: 060
     Dates: start: 20230426
  11. METFORMIN HYDROCHLORIDE [Concomitant]
     Active Substance: METFORMIN HYDROCHLORIDE
     Indication: Product used for unknown indication
     Dosage: 1000 MG, BID, ER
     Route: 048
     Dates: start: 20050621
  12. METOPROLOL TARTRATE [Concomitant]
     Active Substance: METOPROLOL TARTRATE
     Indication: Product used for unknown indication
     Dosage: 37.5 MG, BID, TABLET 37.5 MG
     Route: 048
     Dates: start: 20230720
  13. FISH OIL\OMEGA-3 FATTY ACIDS [Concomitant]
     Active Substance: FISH OIL\OMEGA-3 FATTY ACIDS
     Indication: Product used for unknown indication
     Dosage: 1250 MG, QD
     Route: 048
     Dates: start: 20210721
  14. OMEPRAZOLE [Concomitant]
     Active Substance: OMEPRAZOLE
     Indication: Product used for unknown indication
     Dosage: 20 MG, BID, CAPSULE DELAYED RELEASE
     Route: 048
     Dates: start: 20240426
  15. SPIRONOLACTONE [Concomitant]
     Active Substance: SPIRONOLACTONE
     Indication: Product used for unknown indication
     Dosage: 50 MG, BID, TABLET 50
     Route: 048
     Dates: start: 20220105

REACTIONS (9)
  - Hernia [Not Recovered/Not Resolved]
  - Gastrointestinal disorder [Not Recovered/Not Resolved]
  - Gastrooesophageal reflux disease [Not Recovered/Not Resolved]
  - Sensation of foreign body [Not Recovered/Not Resolved]
  - Constipation [Unknown]
  - Nasopharyngitis [Unknown]
  - Nasopharyngitis [Not Recovered/Not Resolved]
  - Dyspepsia [Not Recovered/Not Resolved]
  - Diarrhoea [Not Recovered/Not Resolved]

NARRATIVE: CASE EVENT DATE: 20231217
